FAERS Safety Report 17583937 (Version 2)
Quarter: 2020Q2

REPORT INFORMATION
  Report Type: Report from Study
  Country: KR (occurrence: KR)
  Receive Date: 20200326
  Receipt Date: 20200410
  Transmission Date: 20200713
  Serious: Yes (Hospitalization, Other)
  Sender: FDA-Public Use
  Company Number: KR-BRISTOL-MYERS SQUIBB COMPANY-BMS-2020-023900

PATIENT
  Age: 54 Year
  Sex: Female

DRUGS (1)
  1. ABATACEPT [Suspect]
     Active Substance: ABATACEPT
     Indication: RHEUMATOID ARTHRITIS
     Dosage: 750 MILLIGRAM, PER 5 WEEKS
     Route: 065

REACTIONS (4)
  - Influenza virus test [Recovered/Resolved]
  - Pneumonia bacterial [Recovered/Resolved]
  - Pneumonia cryptococcal [Recovered/Resolved]
  - Off label use [Unknown]

NARRATIVE: CASE EVENT DATE: 20190708
